FAERS Safety Report 23665454 (Version 1)
Quarter: 2024Q1

REPORT INFORMATION
  Report Type: Spontaneous
  Country: US (occurrence: US)
  Receive Date: 20240323
  Receipt Date: 20240323
  Transmission Date: 20240410
  Serious: No
  Sender: FDA-Public Use
  Company Number: US-HALEON-USCH2024014699

PATIENT

DRUGS (1)
  1. ADVIL [Suspect]
     Active Substance: IBUPROFEN
     Indication: Limb injury
     Dosage: UNK

REACTIONS (3)
  - Headache [Recovered/Resolved]
  - Inflammation [Recovering/Resolving]
  - Gastrooesophageal reflux disease [Recovered/Resolved]
